FAERS Safety Report 24992897 (Version 1)
Quarter: 2025Q1

REPORT INFORMATION
  Report Type: Spontaneous
  Country: US (occurrence: US)
  Receive Date: 20250221
  Receipt Date: 20250221
  Transmission Date: 20250409
  Serious: Yes (Other)
  Sender: GALDERMA
  Company Number: US-GALDERMA-US2025002316

PATIENT
  Sex: Female

DRUGS (2)
  1. NEMLUVIO [Suspect]
     Active Substance: NEMOLIZUMAB-ILTO
     Indication: Neurodermatitis
     Route: 058
  2. NEMLUVIO [Suspect]
     Active Substance: NEMOLIZUMAB-ILTO
     Route: 058
     Dates: start: 20250125, end: 20250125

REACTIONS (7)
  - Cerebrospinal fluid leakage [Unknown]
  - Pruritus [Recovering/Resolving]
  - Skin haemorrhage [Unknown]
  - Feeling hot [Unknown]
  - Migraine [Unknown]
  - Nerve injury [Unknown]
  - Product dose omission issue [Recovered/Resolved]
